FAERS Safety Report 23133364 (Version 1)
Quarter: 2023Q4

REPORT INFORMATION
  Report Type: Spontaneous
  Country: US (occurrence: None)
  Receive Date: 20231030
  Receipt Date: 20231030
  Transmission Date: 20240109
  Serious: Yes (Hospitalization)
  Sender: FDA-Public Use
  Company Number: None

PATIENT
  Sex: Male

DRUGS (14)
  1. HUMIRA [Suspect]
     Active Substance: ADALIMUMAB
     Indication: Crohn^s disease
     Route: 058
     Dates: start: 20211109
  2. FLUTICASONE POW PROPIONA [Concomitant]
  3. LOMOTIL TAB 2.5MG [Concomitant]
  4. MECLIZINE CHW [Concomitant]
  5. NADOLOL TAB 20MG [Concomitant]
  6. OMEPRAZOLE CAP 20 [Concomitant]
  7. ONDANSETRON TAB [Concomitant]
  8. PENTASA CAP [Concomitant]
  9. PREDNISONE [Concomitant]
     Active Substance: PREDNISONE
  10. PROAIR HFA AER [Concomitant]
  11. VITAMIN B-6 TAB [Concomitant]
  12. VITAMIN D CHW 1000UNIT [Concomitant]
  13. WARFARIN TAB 5MG [Concomitant]
  14. ZYRTEC ALLGY CAP [Concomitant]

REACTIONS (1)
  - Hospitalisation [None]
